FAERS Safety Report 8236671-1 (Version None)
Quarter: 2012Q1

REPORT INFORMATION
  Report Type: 
  Country: None (occurrence: None)
  Receive Date: 20120327
  Receipt Date: 20120315
  Transmission Date: 20120608
  Serious: Yes (Hospitalization, Disabling, Other)
  Sender: FDA-Public Use
  Company Number: GB-JNJFOC-20120105459

PATIENT
  Sex: Male

DRUGS (20)
  1. LISINOPRIL [Concomitant]
     Route: 065
  2. FUROSEMIDE [Concomitant]
     Route: 065
  3. GABAPENTIN [Concomitant]
     Route: 065
  4. OXYCODONE HCL [Concomitant]
     Route: 065
  5. ASPIRIN [Concomitant]
     Route: 065
  6. ATORVASTATIN [Concomitant]
     Route: 065
  7. OXYCODONE HCL [Concomitant]
     Dosage: 5-10 MG DOSE
     Route: 065
  8. REMICADE [Suspect]
     Indication: RHEUMATOID ARTHRITIS
     Route: 042
     Dates: start: 20111101, end: 20120101
  9. NITROGLYCERIN [Concomitant]
     Route: 065
  10. REMICADE [Suspect]
     Dosage: SINCE 2 YEARS
     Route: 042
     Dates: start: 20090101
  11. FOLIC ACID [Concomitant]
     Route: 065
  12. ACETAMINOPHEN [Concomitant]
     Route: 065
  13. HYPROMELLOSE [Concomitant]
     Route: 065
  14. BISOPROLOL FUMARATE [Concomitant]
     Route: 065
  15. NABUMETONE [Concomitant]
     Route: 065
  16. LANSOPRAZOLE [Concomitant]
     Route: 065
  17. FENTANYL [Concomitant]
     Route: 065
  18. PREDNISOLONE [Concomitant]
     Route: 065
  19. ALENDRONIC ACID [Concomitant]
     Route: 065
  20. METHOTREXATE [Concomitant]
     Route: 065

REACTIONS (2)
  - PYODERMA GANGRENOSUM [None]
  - CELLULITIS [None]
